FAERS Safety Report 9694263 (Version 1)
Quarter: 2013Q4

REPORT INFORMATION
  Report Type: Spontaneous
  Country: US (occurrence: US)
  Receive Date: 20131118
  Receipt Date: 20131118
  Transmission Date: 20140711
  Serious: No
  Sender: FDA-Public Use
  Company Number: US-PFIZER INC-2013327764

PATIENT
  Sex: Female

DRUGS (1)
  1. LYRICA [Suspect]
     Dosage: UNK

REACTIONS (5)
  - Amnesia [Unknown]
  - Feeling abnormal [Unknown]
  - Fibromyalgia [Unknown]
  - Confusional state [Unknown]
  - Thinking abnormal [Unknown]
